FAERS Safety Report 12124356 (Version 1)
Quarter: 2016Q1

REPORT INFORMATION
  Report Type: Spontaneous
  Country: FR (occurrence: FR)
  Receive Date: 20160229
  Receipt Date: 20160229
  Transmission Date: 20160526
  Serious: Yes (Other)
  Sender: FDA-Public Use
  Company Number: FR-HOSPIRA-3182406

PATIENT
  Age: 38 Year
  Sex: Male

DRUGS (2)
  1. VINCRISTINE SULFATE. [Suspect]
     Active Substance: VINCRISTINE SULFATE
     Indication: RHABDOMYOSARCOMA
     Route: 042
     Dates: start: 20140415, end: 20140708
  2. DACTINOMYCINE [Suspect]
     Active Substance: DACTINOMYCIN
     Indication: RHABDOMYOSARCOMA
     Dates: start: 20140415

REACTIONS (2)
  - Cerebellar syndrome [Not Recovered/Not Resolved]
  - Nervous system disorder [Not Recovered/Not Resolved]

NARRATIVE: CASE EVENT DATE: 201406
